FAERS Safety Report 8118709-5 (Version None)
Quarter: 2011Q4

REPORT INFORMATION
  Report Type: 
  Country: None (occurrence: None)
  Receive Date: 20111227
  Receipt Date: 20111116
  Transmission Date: 20120403
  Serious: No
  Sender: FDA-Public Use
  Company Number: PHEH2011US07126

PATIENT
  Age: 33 Year
  Sex: Female
  Weight: 99.8 kg

DRUGS (14)
  1. VICODIN [Concomitant]
  2. CELEBREX [Concomitant]
  3. ALBUTEROL [Concomitant]
  4. FAMPRIDINE (FAMPRIDINE) [Concomitant]
  5. FLONASE [Concomitant]
  6. GILENYA [Suspect]
     Dosage: 1 DF, QD, ORAL
     Route: 048
  7. LYRICA [Concomitant]
  8. IBUBPROFEN (IBUPROFEN) [Concomitant]
  9. BENZOIC ACID (BENZOIC ACID) [Concomitant]
  10. DEXLANSOPRAZOLE [Concomitant]
  11. SINGULAIR [Concomitant]
  12. ZYRTEC [Concomitant]
  13. PERCOCET [Concomitant]
  14. NUVIGIL [Concomitant]

REACTIONS (2)
  - FATIGUE [None]
  - COUGH [None]
